FAERS Safety Report 13428245 (Version 2)
Quarter: 2017Q2

REPORT INFORMATION
  Report Type: Report from Study
  Country: BR (occurrence: BR)
  Receive Date: 20170411
  Receipt Date: 20170412
  Transmission Date: 20170830
  Serious: Yes (Hospitalization)
  Sender: FDA-Public Use
  Company Number: ALCN2017BR001808

PATIENT
  Sex: Female
  Weight: 49 kg

DRUGS (1)
  1. AZORGA [Suspect]
     Active Substance: BRINZOLAMIDE\TIMOLOL MALEATE
     Indication: GLAUCOMA
     Dosage: NK, BID
     Route: 047

REACTIONS (3)
  - Infection [Recovering/Resolving]
  - Visual impairment [Recovering/Resolving]
  - Drug ineffective [Unknown]

NARRATIVE: CASE EVENT DATE: 2014
